FAERS Safety Report 8575895 (Version 2)
Quarter: 2012Q4

REPORT INFORMATION
  Report Type: 
  Country: MX (occurrence: MX)
  Receive Date: 20120523
  Receipt Date: 20121030
  Transmission Date: 20130627
  Serious: Yes (Hospitalization)
  Sender: FDA-Public Use
  Company Number: PHHY2012MX042706

PATIENT
  Age: 65 Year
  Sex: Male

DRUGS (3)
  1. DIOVAN [Suspect]
     Indication: HYPERTENSION
     Dosage: 2 tablets (80 mg) per day
     Dates: start: 20101009, end: 20120511
  2. GLIBENCLAMIDE [Concomitant]
     Indication: DIABETES MELLITUS
     Dates: end: 20120426
  3. METFORMIN [Concomitant]
     Indication: DIABETES MELLITUS
     Dates: start: 20120426

REACTIONS (6)
  - Localised infection [Recovered/Resolved]
  - Oedema peripheral [Recovered/Resolved]
  - Staphylococcus test positive [Unknown]
  - Blood glucose increased [Recovered/Resolved]
  - Gouty arthritis [Unknown]
  - Blood pressure increased [Recovered/Resolved]
